FAERS Safety Report 24624327 (Version 1)
Quarter: 2024Q4

REPORT INFORMATION
  Report Type: Spontaneous
  Country: US (occurrence: US)
  Receive Date: 20241115
  Receipt Date: 20241115
  Transmission Date: 20250114
  Serious: Yes (Other)
  Sender: SANOFI AVENTIS
  Company Number: US-SA-2024SA330778

PATIENT
  Sex: Female
  Weight: 93.18 kg

DRUGS (1)
  1. DUPIXENT [Suspect]
     Active Substance: DUPILUMAB
     Indication: Asthma
     Dosage: 300 MG, QOW
     Route: 058

REACTIONS (2)
  - Thyroid cancer [Not Recovered/Not Resolved]
  - Nasal congestion [Not Recovered/Not Resolved]
